FAERS Safety Report 9672059 (Version 1)
Quarter: 2013Q4

REPORT INFORMATION
  Report Type: Spontaneous
  Country: GB (occurrence: GB)
  Receive Date: 20131106
  Receipt Date: 20131106
  Transmission Date: 20140711
  Serious: Yes (Other)
  Sender: FDA-Public Use
  Company Number: GB-ASTRAZENECA-2013SE79897

PATIENT
  Sex: 0

DRUGS (11)
  1. QUETIAPINE [Suspect]
     Route: 048
  2. OLANZAPINE [Suspect]
     Indication: ANXIETY
     Route: 048
  3. OLANZAPINE [Suspect]
     Indication: FACIAL PAIN
     Route: 048
  4. OLANZAPINE [Suspect]
     Indication: PANIC ATTACK
     Route: 048
  5. OLANZAPINE [Suspect]
     Indication: TRIGEMINAL NEURALGIA
     Route: 048
  6. OLANZAPINE [Suspect]
     Indication: ANXIETY
     Route: 048
  7. OLANZAPINE [Suspect]
     Indication: FACIAL PAIN
     Route: 048
  8. OLANZAPINE [Suspect]
     Indication: PANIC ATTACK
     Route: 048
  9. OLANZAPINE [Suspect]
     Indication: TRIGEMINAL NEURALGIA
     Route: 048
  10. TEGRETOL [Concomitant]
     Indication: TEMPORAL LOBE EPILEPSY
  11. VALIUM [Concomitant]
     Indication: PRODUCT USED FOR UNKNOWN INDICATION

REACTIONS (4)
  - Suicidal ideation [Unknown]
  - Head injury [Unknown]
  - Suicidal behaviour [Unknown]
  - Syncope [Unknown]
